FAERS Safety Report 8782795 (Version 1)
Quarter: 2012Q4

REPORT INFORMATION
  Report Type: Report from Study
  Country: US (occurrence: US)
  Receive Date: 20120913
  Receipt Date: 20120913
  Transmission Date: 20130627
  Serious: Yes (Other)
  Sender: FDA-Public Use
  Company Number: US-US-EMD SERONO, INC.-7159737

PATIENT
  Sex: Female

DRUGS (3)
  1. REBIF [Suspect]
     Indication: MULTIPLE SCLEROSIS
     Route: 058
     Dates: start: 20100402
  2. ATENOLOL [Concomitant]
     Indication: SUPRAVENTRICULAR EXTRASYSTOLES
     Dates: start: 2001
  3. KLONOPIN [Concomitant]
     Indication: PANIC ATTACK
     Dates: start: 2001

REACTIONS (5)
  - Fuchs^ syndrome [Unknown]
  - Cataract [Not Recovered/Not Resolved]
  - Pain in extremity [Not Recovered/Not Resolved]
  - Injection site bruising [Unknown]
  - Injection site urticaria [Unknown]
